FAERS Safety Report 9700744 (Version 2)
Quarter: 2013Q4

REPORT INFORMATION
  Report Type: Spontaneous
  Country: US (occurrence: US)
  Receive Date: 20131121
  Receipt Date: 20131122
  Transmission Date: 20140711
  Serious: No
  Sender: FDA-Public Use
  Company Number: US-PFIZER INC-2013331761

PATIENT
  Age: 69 Year
  Sex: Male
  Weight: 107 kg

DRUGS (3)
  1. GABAPENTIN [Suspect]
     Indication: OSTEOARTHRITIS
     Dosage: 300 MG, 1X/DAY
     Route: 048
     Dates: start: 20131001
  2. GABAPENTIN [Suspect]
     Indication: PARAESTHESIA
     Dosage: 300 MG, 2X/DAY
     Route: 048
     Dates: start: 201310
  3. GABAPENTIN [Suspect]
     Dosage: 300 MG, UNK
     Route: 048
     Dates: end: 2013

REACTIONS (2)
  - Off label use [Unknown]
  - Drug ineffective for unapproved indication [Unknown]
